FAERS Safety Report 24664233 (Version 2)
Quarter: 2024Q4

REPORT INFORMATION
  Report Type: Report from Study
  Country: GB (occurrence: GB)
  Receive Date: 20241126
  Receipt Date: 20241231
  Transmission Date: 20250115
  Serious: Yes (Hospitalization)
  Sender: CELLTRION
  Company Number: GB-CELLTRION INC.-2024GB029536

PATIENT

DRUGS (1)
  1. ADALIMUMAB-AATY [Suspect]
     Active Substance: ADALIMUMAB-AATY
     Indication: Colitis ulcerative
     Dosage: YUFLYMA (ADALIMUMAB) 40MG PEN PK2
     Route: 058
     Dates: start: 202406

REACTIONS (3)
  - Ill-defined disorder [Unknown]
  - Infection [Unknown]
  - Intentional dose omission [Unknown]
